FAERS Safety Report 6708501-8 (Version None)
Quarter: 2010Q2

REPORT INFORMATION
  Report Type: 
  Country: None (occurrence: None)
  Receive Date: 20100503
  Receipt Date: 20091007
  Transmission Date: 20101027
  Serious: No
  Sender: FDA-Public Use
  Company Number: US-ASTRAZENECA-2009SE18579

PATIENT
  Age: 64 Year
  Sex: Female
  Weight: 74.8 kg

DRUGS (12)
  1. NEXIUM [Suspect]
     Indication: BARRETT'S OESOPHAGUS
     Route: 048
  2. AMBIEN [Concomitant]
  3. ZOLOFT [Concomitant]
  4. IMIROL [Concomitant]
  5. DILTIAZEM HCL [Concomitant]
  6. IBUPROFEN [Concomitant]
  7. ISOSORBIDE [Concomitant]
  8. KEFLEX [Concomitant]
  9. SYNTHROID [Concomitant]
  10. XANAX [Concomitant]
  11. ZOCOR [Concomitant]
  12. ASPIRIN [Concomitant]

REACTIONS (3)
  - BARRETT'S OESOPHAGUS [None]
  - DRUG INEFFECTIVE [None]
  - THROAT LESION [None]
